FAERS Safety Report 24917164 (Version 1)
Quarter: 2025Q1

REPORT INFORMATION
  Report Type: Report from Study
  Country: US (occurrence: US)
  Receive Date: 20250203
  Receipt Date: 20250203
  Transmission Date: 20250409
  Serious: Yes (Hospitalization, Other)
  Sender: ABBVIE
  Company Number: US-ABBVIE-6109178

PATIENT
  Age: 62 Year
  Sex: Female
  Weight: 45.35 kg

DRUGS (4)
  1. ARMOUR THYROID [Suspect]
     Active Substance: THYROID, PORCINE
     Indication: Haemorrhage
     Route: 048
     Dates: start: 202412
  2. ARMOUR THYROID [Suspect]
     Active Substance: THYROID, PORCINE
     Indication: Haemorrhage
     Route: 048
     Dates: start: 1961, end: 202412
  3. METOPROLOL [Concomitant]
     Active Substance: METOPROLOL
     Indication: Blood pressure measurement
  4. DILTIAZEM [Concomitant]
     Active Substance: DILTIAZEM
     Indication: Blood pressure measurement

REACTIONS (9)
  - Atrial fibrillation [Recovering/Resolving]
  - Decreased appetite [Recovering/Resolving]
  - Fatigue [Recovering/Resolving]
  - Asthenia [Recovering/Resolving]
  - Cardiomegaly [Recovering/Resolving]
  - Oedema peripheral [Recovering/Resolving]
  - Weight decreased [Recovering/Resolving]
  - Dehydration [Not Recovered/Not Resolved]
  - Red blood cell count increased [Not Recovered/Not Resolved]

NARRATIVE: CASE EVENT DATE: 20040201
